FAERS Safety Report 19237418 (Version 2)
Quarter: 2021Q2

REPORT INFORMATION
  Report Type: Spontaneous
  Country: US (occurrence: US)
  Receive Date: 20210510
  Receipt Date: 20210603
  Transmission Date: 20210717
  Serious: No
  Sender: FDA-Public Use
  Company Number: US-SA-2021SA153390

PATIENT
  Sex: Male

DRUGS (1)
  1. DUPIXENT [Suspect]
     Active Substance: DUPILUMAB
     Indication: NASAL POLYPS
     Dosage: UNK
     Route: 065

REACTIONS (6)
  - Chills [Unknown]
  - Hypotension [Unknown]
  - Insomnia [Unknown]
  - Fatigue [Unknown]
  - Sinusitis [Unknown]
  - Upper respiratory tract infection [Unknown]
